FAERS Safety Report 10041979 (Version 1)
Quarter: 2014Q1

REPORT INFORMATION
  Report Type: Report from Study
  Country: US (occurrence: KR)
  Receive Date: 20140327
  Receipt Date: 20140327
  Transmission Date: 20141002
  Serious: Yes (Death, Hospitalization, Other)
  Sender: FDA-Public Use
  Company Number: KR-FRI-1000065874

PATIENT
  Age: 65 Year
  Sex: Male
  Weight: 62 kg

DRUGS (21)
  1. ROFLUMILAST [Suspect]
     Indication: CHRONIC OBSTRUCTIVE PULMONARY DISEASE
     Dosage: 500 MCG
     Route: 048
     Dates: start: 20140211, end: 20140308
  2. ASIMA TAB [Concomitant]
     Dates: start: 20131205, end: 20140307
  3. SPIRIVA RESPIMAT [Concomitant]
     Dates: start: 20131205, end: 20140308
  4. VENTOLIN EVOHALER [Concomitant]
     Dates: start: 20140211, end: 2014
  5. SERETIDE 500 DISKUS [Concomitant]
     Dates: start: 20140102, end: 20140308
  6. GELOMYRTOL FORTE SOFT CAP [Concomitant]
     Dates: start: 20131128, end: 20140310
  7. SYNATURA SYRUP [Concomitant]
     Dates: start: 20131128, end: 20140309
  8. METHYLON [Concomitant]
     Dates: start: 20140225, end: 20140305
  9. SPIRONOLACTONE [Concomitant]
     Dates: start: 20140102, end: 20140302
  10. SPIRONOLACTONE [Concomitant]
     Dates: start: 20140303, end: 20140308
  11. AVAMYS [Concomitant]
     Dates: start: 20140102, end: 20140306
  12. ONBREZ [Concomitant]
     Dates: start: 20140303, end: 20140308
  13. MICARDIS [Concomitant]
     Dates: start: 20140303, end: 20140308
  14. ZOLMIN [Concomitant]
     Dates: start: 20140303, end: 20140307
  15. K-CONTIN CONTINUS [Concomitant]
     Dates: start: 20140303, end: 20140308
  16. STILLEN TAB [Concomitant]
     Dates: start: 20140303, end: 20140308
  17. SALON H9C [Concomitant]
     Dates: start: 20140301, end: 20140301
  18. AMINOPHYLLINE [Concomitant]
     Dates: start: 20140307, end: 20140307
  19. AMINOPHYLLINE [Concomitant]
     Dates: start: 20140307, end: 20140310
  20. DOBURAN [Concomitant]
  21. LANSTON [Concomitant]
     Dates: start: 20140303, end: 20140308

REACTIONS (3)
  - Chronic obstructive pulmonary disease [Recovered/Resolved with Sequelae]
  - Chronic obstructive pulmonary disease [Fatal]
  - Chronic obstructive pulmonary disease [Recovered/Resolved with Sequelae]
